FAERS Safety Report 5804957-3 (Version None)
Quarter: 2008Q3

REPORT INFORMATION
  Report Type: 
  Country: None (occurrence: None)
  Receive Date: 20080709
  Receipt Date: 20080627
  Transmission Date: 20090109
  Serious: Yes (Other)
  Sender: FDA-Public Use
  Company Number: US-PFIZER INC-2008046471

PATIENT
  Sex: Female
  Weight: 66.2 kg

DRUGS (5)
  1. CHANTIX [Suspect]
     Indication: SMOKING CESSATION THERAPY
     Route: 048
  2. KLONOPIN [Concomitant]
     Route: 048
  3. ZYPREXA [Concomitant]
     Route: 048
  4. EFFEXOR [Concomitant]
     Route: 048
  5. QUINAPRIL [Concomitant]

REACTIONS (2)
  - BIPOLAR I DISORDER [None]
  - PARANOIA [None]
